FAERS Safety Report 6774292-8 (Version None)
Quarter: 2010Q2

REPORT INFORMATION
  Report Type: 
  Country: None (occurrence: None)
  Receive Date: 20100617
  Receipt Date: 20100608
  Transmission Date: 20101027
  Serious: Yes (Other)
  Sender: FDA-Public Use
  Company Number: ES-PFIZER INC-2010055317

PATIENT
  Age: 35 Year
  Sex: Male

DRUGS (2)
  1. ZELDOX [Suspect]
     Indication: PSYCHOTIC DISORDER
     Dosage: 80 MG, UNK
     Route: 048
     Dates: start: 20100101
  2. ZELDOX [Suspect]
     Dosage: 320MG/DAY
     Route: 048

REACTIONS (2)
  - BRADYCARDIA [None]
  - PRESYNCOPE [None]
